FAERS Safety Report 5409102-4 (Version None)
Quarter: 2007Q3

REPORT INFORMATION
  Report Type: 
  Country: None (occurrence: None)
  Receive Date: 20070806
  Receipt Date: 20070726
  Transmission Date: 20080115
  Serious: Yes (Hospitalization, Other)
  Sender: FDA-Public Use
  Company Number: GXKR2007DK06484

PATIENT
  Age: 36 Year
  Sex: Female

DRUGS (20)
  1. GABAPENTIN SANDOZ (NGX)(GABAPENTIN) UNNKOWN, 300MG [Suspect]
     Indication: ANXIETY
     Dosage: ORAL
     Route: 048
     Dates: start: 20061222, end: 20070412
  2. RENAGEL [Concomitant]
  3. PHOS-EX (CALCIUM ACETATE) [Concomitant]
  4. IMOVANE (ZOPICLONE) [Concomitant]
  5. NITROGLYCERIN ^DAK^ (GLYCERYL TRINITRATE) [Concomitant]
  6. TRAMADOL HYDROCHLORIDE [Concomitant]
  7. CINACALCET (CINACALCET) [Concomitant]
  8. CLIMODIEN (DIENOGEST, ESTRADIOL VALERATE) [Concomitant]
  9. NIFEREX (POLYSACCHARIDE-IRON COMPLEX) [Concomitant]
  10. VENOFER [Concomitant]
  11. METOPROLOL SUCCINATE [Concomitant]
  12. EPREX [Concomitant]
  13. VITAMIN B-COMPLEX (NO INGREDIENTS/SUBSTANCES) [Concomitant]
  14. C-VITAMIN (ASCORBIC ACID) [Concomitant]
  15. PAMOL (PARACETAMOL) [Concomitant]
  16. ATACAND [Concomitant]
  17. ZOLOFT [Concomitant]
  18. PANTOPRAZOLE SODIUM [Concomitant]
  19. CETIRIZINE HCL [Concomitant]
  20. OXAZEPAM [Concomitant]

REACTIONS (6)
  - ASTHENIA [None]
  - CONVULSION [None]
  - COORDINATION ABNORMAL [None]
  - MEMORY IMPAIRMENT [None]
  - SCAR [None]
  - SPEECH DISORDER [None]
